FAERS Safety Report 8730409 (Version 2)
Quarter: 2012Q4

REPORT INFORMATION
  Report Type: 
  Country: US (occurrence: US)
  Receive Date: 20120817
  Receipt Date: 20120905
  Transmission Date: 20130627
  Serious: Yes (Other)
  Sender: FDA-Public Use
  Company Number: US-ROCHE-1065029

PATIENT
  Age: 34 None
  Sex: Female
  Weight: 49.94 kg

DRUGS (6)
  1. ACCUTANE [Suspect]
     Indication: ACNE
     Route: 065
     Dates: start: 199901, end: 200012
  2. ACCUTANE [Suspect]
     Route: 065
     Dates: start: 20001221, end: 20010121
  3. DYNACIN [Concomitant]
  4. MAXALT-MLT [Concomitant]
  5. ALLEGRA [Concomitant]
  6. DICYCLOMINE [Concomitant]

REACTIONS (5)
  - Crohn^s disease [Not Recovered/Not Resolved]
  - Colitis ulcerative [Not Recovered/Not Resolved]
  - Inflammatory bowel disease [Not Recovered/Not Resolved]
  - Depression [Unknown]
  - Large intestine polyp [Unknown]
